FAERS Safety Report 6207870-5 (Version None)
Quarter: 2009Q2

REPORT INFORMATION
  Report Type: 
  Country: None (occurrence: None)
  Receive Date: 20090527
  Receipt Date: 20090512
  Transmission Date: 20091009
  Serious: Yes (Hospitalization)
  Sender: FDA-Public Use
  Company Number: 2009S1008360

PATIENT
  Age: 75 Year
  Sex: Male

DRUGS (5)
  1. MIRTAZAPINE [Suspect]
     Indication: DEPRESSION
  2. DEMECLOCYCLINE HCL [Suspect]
     Indication: HYPONATRAEMIA
  3. BUSPIRONE (CON.) [Concomitant]
  4. BENZATROPINE (CON.) [Concomitant]
  5. OXYBUTYNIN (CON.) [Concomitant]

REACTIONS (11)
  - ANAEMIA [None]
  - CONFUSIONAL STATE [None]
  - DEHYDRATION [None]
  - DELIRIUM [None]
  - FALL [None]
  - HYPERNATRAEMIA [None]
  - HYPONATRAEMIA [None]
  - HYPOTENSION [None]
  - HYPOVOLAEMIA [None]
  - IMPAIRED WORK ABILITY [None]
  - INAPPROPRIATE ANTIDIURETIC HORMONE SECRETION [None]
